FAERS Safety Report 5950453-2 (Version None)
Quarter: 2008Q4

REPORT INFORMATION
  Report Type: 
  Country: None (occurrence: None)
  Receive Date: 20081022
  Receipt Date: 20080819
  Transmission Date: 20090506
  Serious: No
  Sender: FDA-Public Use
  Company Number: ALL1-2008-02363

PATIENT
  Age: 13 Year
  Sex: Male
  Weight: 72.6 kg

DRUGS (4)
  1. VYVANSE [Suspect]
     Indication: ATTENTION DEFICIT/HYPERACTIVITY DISORDER
     Dosage: 20 MG, 1X/DAY:QD, ORAL 70 MG, 1X/DAY:QD, ORAL 100 MG, 1X/DAY:QD GIVEN TWO 50 MG, ORAL
     Route: 048
     Dates: start: 20080101, end: 20080401
  2. VYVANSE [Suspect]
     Indication: ATTENTION DEFICIT/HYPERACTIVITY DISORDER
     Dosage: 20 MG, 1X/DAY:QD, ORAL 70 MG, 1X/DAY:QD, ORAL 100 MG, 1X/DAY:QD GIVEN TWO 50 MG, ORAL
     Route: 048
     Dates: start: 20080401, end: 20080801
  3. VYVANSE [Suspect]
     Indication: ATTENTION DEFICIT/HYPERACTIVITY DISORDER
     Dosage: 20 MG, 1X/DAY:QD, ORAL 70 MG, 1X/DAY:QD, ORAL 100 MG, 1X/DAY:QD GIVEN TWO 50 MG, ORAL
     Route: 048
     Dates: start: 20080801
  4. EFFEXOR /01233801/ (VENLAFAXINE) [Concomitant]

REACTIONS (5)
  - DRUG INEFFECTIVE [None]
  - GROWTH ACCELERATED [None]
  - OFF LABEL USE [None]
  - OVERDOSE [None]
  - WEIGHT INCREASED [None]
